FAERS Safety Report 9904318 (Version 1)
Quarter: 2014Q1

REPORT INFORMATION
  Report Type: Spontaneous
  Country: US (occurrence: US)
  Receive Date: 20140218
  Receipt Date: 20140218
  Transmission Date: 20141002
  Serious: No
  Sender: FDA-Public Use
  Company Number: US-PFIZER INC-2014044775

PATIENT
  Age: 37 Year
  Sex: Female
  Weight: 90.7 kg

DRUGS (3)
  1. GABAPENTIN [Suspect]
     Indication: BACK PAIN
     Dosage: 400 MG, 3X/DAY
     Dates: start: 201310, end: 201312
  2. GABAPENTIN [Suspect]
     Indication: SCHIZOPHRENIA, PARANOID TYPE
     Dosage: 400 MG, 3X/DAY
     Dates: start: 201401
  3. METHADONE [Concomitant]
     Indication: BACK PAIN
     Dosage: 10 MG, AS NEEDED
     Dates: start: 201401

REACTIONS (1)
  - Local swelling [Not Recovered/Not Resolved]
